FAERS Safety Report 7801958-0 (Version None)
Quarter: 2011Q4

REPORT INFORMATION
  Report Type: 
  Country: None (occurrence: None)
  Receive Date: 20111007
  Receipt Date: 20111007
  Transmission Date: 20120403
  Serious: Yes (Life-Threatening)
  Sender: FDA-Public Use
  Company Number: None

PATIENT
  Age: 88 Year
  Sex: Male

DRUGS (1)
  1. RIVAROXABAN [Suspect]
     Indication: HIP ARTHROPLASTY
     Dosage: 10 MG
     Route: 048
     Dates: start: 20110823, end: 20110913

REACTIONS (6)
  - UNRESPONSIVE TO STIMULI [None]
  - PUPILS UNEQUAL [None]
  - MOUTH HAEMORRHAGE [None]
  - HEART RATE INCREASED [None]
  - SUBDURAL HAEMORRHAGE [None]
  - BLOOD PRESSURE INCREASED [None]
